FAERS Safety Report 5383544-8 (Version None)
Quarter: 2007Q3

REPORT INFORMATION
  Report Type: 
  Country: None (occurrence: None)
  Receive Date: 20070706
  Receipt Date: 20070627
  Transmission Date: 20080115
  Serious: Yes (Hospitalization)
  Sender: FDA-Public Use
  Company Number: 008-C5013-07040805

PATIENT
  Age: 64 Year
  Sex: Male
  Weight: 86.3 kg

DRUGS (10)
  1. CC-5013 (LENALIDOMIDE) (CAPSULES) [Suspect]
     Indication: MULTIPLE MYELOMA
     Dosage: 25 MG, DAILY FOR 21 DAYS, ORAL
     Route: 048
     Dates: start: 20070331, end: 20070415
  2. DEXAMETHASONE TAB [Suspect]
     Indication: MULTIPLE MYELOMA
     Dosage: 40 MG, DAILY ON DAYS 1-4, 9-12
     Dates: start: 20070331, end: 20070411
  3. OROXINE (LEVOTHYROXINE SODIUM) (TABLETS) [Concomitant]
  4. CITALOPRAM HYDROBROMIDE [Concomitant]
  5. AVAPRO (IRBESARTAN) (150 MICROGRAM, TABLETS) [Concomitant]
  6. DUPHALAC (LACTULOSE) (SYRUP) [Concomitant]
  7. MS-CONTIN (MORPHINE SULFATE) (30 MILLIGRAM, TABLETS) [Concomitant]
  8. SOMAC (PANTOPRAZOLE SODIUM) (40 MILLIGRAM, TABLETS) [Concomitant]
  9. PANADOL (PARACETAMOL) (500 MILLIGRAM, TABLETS) [Concomitant]
  10. BONEFOS (CLODRONATE DISODIUM) [Concomitant]

REACTIONS (12)
  - BLOOD PRESSURE DECREASED [None]
  - BLOOD SODIUM DECREASED [None]
  - COLD SWEAT [None]
  - DRUG INTERACTION [None]
  - HYPOGLYCAEMIA [None]
  - NEUTROPHIL COUNT DECREASED [None]
  - PLATELET COUNT DECREASED [None]
  - POOR QUALITY SLEEP [None]
  - RENAL FAILURE ACUTE [None]
  - RHABDOMYOLYSIS [None]
  - SEROTONIN SYNDROME [None]
  - WHITE BLOOD CELL COUNT DECREASED [None]
